FAERS Safety Report 7394508-7 (Version None)
Quarter: 2011Q2

REPORT INFORMATION
  Report Type: 
  Country: None (occurrence: None)
  Receive Date: 20110405
  Receipt Date: 20110328
  Transmission Date: 20111010
  Serious: Yes (Other)
  Sender: FDA-Public Use
  Company Number: PHHY2011US26052

PATIENT

DRUGS (8)
  1. EXTAVIA [Suspect]
     Indication: MULTIPLE SCLEROSIS
     Dosage: 0.25 MG, QOD
     Route: 058
     Dates: start: 20100821
  2. ASPIRIN [Concomitant]
     Dosage: UNK
  3. VITAMIN B-12 [Concomitant]
     Dosage: UNK
  4. CALCIUM [Concomitant]
     Dosage: UNK
  5. EXCEDRIN (MIGRAINE) [Concomitant]
  6. TYLENOL PM [Concomitant]
  7. VITAMIN D [Concomitant]
  8. ACETAMINOPHEN [Concomitant]

REACTIONS (1)
  - BASAL CELL CARCINOMA [None]
